FAERS Safety Report 7289033-8 (Version None)
Quarter: 2011Q1

REPORT INFORMATION
  Report Type: 
  Country: None (occurrence: None)
  Receive Date: 20110211
  Receipt Date: 20110209
  Transmission Date: 20110831
  Serious: Yes (Hospitalization)
  Sender: FDA-Public Use
  Company Number: US-MEDIMMUNE-MEDI-0012460

PATIENT
  Sex: Female
  Weight: 0.427 kg

DRUGS (7)
  1. PEDIALYTE [Concomitant]
     Dates: start: 20101201
  2. SYNAGIS [Suspect]
     Route: 030
     Dates: start: 20101115, end: 20101115
  3. SYNAGIS [Suspect]
     Route: 030
     Dates: end: 20110110
  4. DIURIL [Concomitant]
     Dates: start: 20101201
  5. PEPCID [Concomitant]
     Dates: start: 20101201
  6. AMOXICILLIN [Concomitant]
     Dates: start: 20101201
  7. QVAR 40 [Concomitant]
     Dates: start: 20101201

REACTIONS (3)
  - URINARY TRACT INFECTION [None]
  - DEHYDRATION [None]
  - VOMITING [None]
